FAERS Safety Report 7145483-1 (Version None)
Quarter: 2010Q4

REPORT INFORMATION
  Report Type: 
  Country: None (occurrence: None)
  Receive Date: 20101208
  Receipt Date: 20101123
  Transmission Date: 20110411
  Serious: Yes (Death)
  Sender: FDA-Public Use
  Company Number: DE-RANBAXY-2010RR-39808

PATIENT
  Age: 53 Year
  Sex: Female

DRUGS (4)
  1. FLUOXETINE [Suspect]
     Indication: SUICIDE ATTEMPT
     Dosage: 30 MG, UNK
     Route: 048
  2. SERTRALINE HYDROCHLORIDE [Suspect]
     Indication: SUICIDE ATTEMPT
     Dosage: 150 MG, UNK
     Route: 048
  3. JATROSOM [Suspect]
     Indication: SUICIDE ATTEMPT
     Dosage: 70 MG, UNK
     Route: 048
  4. TYRAMINE [Suspect]
     Indication: SUICIDE ATTEMPT

REACTIONS (5)
  - DRUG INTERACTION [None]
  - HYPERTHERMIA [None]
  - OVERDOSE [None]
  - SEROTONIN SYNDROME [None]
  - SUICIDE ATTEMPT [None]
